FAERS Safety Report 7161725-0 (Version None)
Quarter: 2010Q4

REPORT INFORMATION
  Report Type: 
  Country: None (occurrence: None)
  Receive Date: 20101201
  Receipt Date: 20101112
  Transmission Date: 20110411
  Serious: Yes (Life-Threatening)
  Sender: FDA-Public Use
  Company Number: AUR-APL-2010-02876

PATIENT
  Sex: Male

DRUGS (10)
  1. ATENOLOL [Suspect]
     Dosage: 25MG - ORAL
     Route: 048
     Dates: start: 20011001
  2. RAMIPRIL [Suspect]
     Dosage: ORAL
     Route: 048
     Dates: start: 20061001, end: 20101022
  3. DICLOFENAC SODIUM [Suspect]
     Indication: PAIN
     Dosage: 50MG - ORAL
     Route: 048
  4. HYDROXYCHLOROQUINE SULFATE [Suspect]
     Indication: SYSTEMIC LUPUS ERYTHEMATOSUS
     Dosage: 200MG
     Dates: start: 20100101
  5. PREDNISOLONE [Suspect]
     Indication: SYSTEMIC LUPUS ERYTHEMATOSUS
     Dosage: 5MG - ORAL
     Route: 048
     Dates: start: 20010101
  6. ROSUVASTATIN [Suspect]
     Indication: HYPERCHOLESTEROLAEMIA
     Dosage: 10MG - ORAL
     Route: 048
     Dates: start: 20090101
  7. ALENDRONIC ACID [Concomitant]
  8. ASPIRIN [Concomitant]
  9. CALCICHEW [Concomitant]
  10. MYCOPHENOLATE MOFETIL [Concomitant]

REACTIONS (1)
  - ANGIOEDEMA [None]
